FAERS Safety Report 7246165-8 (Version None)
Quarter: 2011Q1

REPORT INFORMATION
  Report Type: 
  Country: None (occurrence: None)
  Receive Date: 20110126
  Receipt Date: 20110119
  Transmission Date: 20110831
  Serious: Yes (Other)
  Sender: FDA-Public Use
  Company Number: A0908802A

PATIENT
  Sex: Female

DRUGS (1)
  1. PAXIL [Suspect]
     Indication: ANXIETY DISORDER
     Route: 048
     Dates: start: 20040101, end: 20090101

REACTIONS (9)
  - HALLUCINATION [None]
  - HEADACHE [None]
  - TREMOR [None]
  - WEIGHT INCREASED [None]
  - TYPE 1 DIABETES MELLITUS [None]
  - SUICIDAL IDEATION [None]
  - COMPULSIVE SHOPPING [None]
  - ABDOMINAL DISCOMFORT [None]
  - DRUG WITHDRAWAL SYNDROME [None]
